FAERS Safety Report 4636738-0 (Version None)
Quarter: 2005Q2

REPORT INFORMATION
  Report Type: 
  Country: None (occurrence: None)
  Receive Date: 20050414
  Receipt Date: 20050404
  Transmission Date: 20051028
  Serious: Yes (Hospitalization)
  Sender: FDA-Public Use
  Company Number: 2005032255

PATIENT
  Age: 56 Year
  Sex: Female
  Weight: 68.9467 kg

DRUGS (10)
  1. TOLTERODINE TARTRATE [Suspect]
     Indication: URINARY INCONTINENCE
     Dates: start: 20030101
  2. FEXOFENADINE HYDROCHLORIDE [Concomitant]
  3. MONTELUKAST SODIUM (MONTELUKAST SODIUM) [Concomitant]
  4. LOSARTAN POTASSIUM [Concomitant]
  5. DEXAMFETAMINE SULFATE (DEXAMEFETAMINE SULFATE) [Concomitant]
  6. MODAFINIL [Concomitant]
  7. EZETIMIBE (EZETIMIBE) [Concomitant]
  8. VENLAFAXINE HCL [Concomitant]
  9. PRAVASTATIN SODIUM (PRAVASATATIN SODIUM) [Concomitant]
  10. LANSOPRAZOLE [Concomitant]

REACTIONS (9)
  - ABDOMINAL DISTENSION [None]
  - DEHYDRATION [None]
  - GASTROOESOPHAGEAL REFLUX DISEASE [None]
  - HIATUS HERNIA [None]
  - INFECTION [None]
  - IRRITABLE BOWEL SYNDROME [None]
  - PAIN [None]
  - WEIGHT DECREASED [None]
  - WEIGHT INCREASED [None]
